FAERS Safety Report 4658935-0 (Version None)
Quarter: 2005Q2

REPORT INFORMATION
  Report Type: 
  Country: None (occurrence: None)
  Receive Date: 20050509
  Receipt Date: 20050428
  Transmission Date: 20051028
  Serious: Yes (Hospitalization)
  Sender: FDA-Public Use
  Company Number: 05P-056-0299021-00

PATIENT
  Age: 56 Year
  Sex: Male

DRUGS (5)
  1. HUMIRA [Suspect]
     Indication: MUSCULOSKELETAL PAIN
     Dosage: 40 MG,   SUBCUTANEOUS
     Route: 058
     Dates: start: 20041101
  2. HUMIRA [Suspect]
     Indication: PSORIASIS
     Dosage: 40 MG,   SUBCUTANEOUS
     Route: 058
     Dates: start: 20041101
  3. METHOTREXATE [Suspect]
     Dosage: 17.5 MG
  4. ETANERCEPT [Suspect]
  5. PREDNISONE TAB [Suspect]
     Dosage: 20 MG, 1 IN 1 D, PER ORAL
     Route: 048

REACTIONS (6)
  - BENCE JONES PROTEINURIA [None]
  - DRUG EFFECT DECREASED [None]
  - IMMUNOGLOBULINS DECREASED [None]
  - LIGHT CHAIN ANALYSIS ABNORMAL [None]
  - MONOCLONAL IMMUNOGLOBULIN PRESENT [None]
  - MULTIPLE MYELOMA [None]
